FAERS Safety Report 5370672-6 (Version None)
Quarter: 2007Q2

REPORT INFORMATION
  Report Type: 
  Country: None (occurrence: None)
  Receive Date: 20070618
  Receipt Date: 20060829
  Transmission Date: 20071010
  Serious: Yes (Other)
  Sender: FDA-Public Use
  Company Number: PHEH2006US07887

PATIENT
  Age: 74 Year
  Sex: Male

DRUGS (2)
  1. GLEEVEC [Suspect]
     Indication: CHRONIC MYELOID LEUKAEMIA
     Dosage: 400 MG, QD, ORAL; 200 MG, QD, ORAL
     Route: 048
     Dates: start: 20060301, end: 20060601
  2. GLEEVEC [Suspect]
     Indication: CHRONIC MYELOID LEUKAEMIA
     Dosage: 400 MG, QD, ORAL; 200 MG, QD, ORAL
     Route: 048
     Dates: start: 20060601, end: 20060613

REACTIONS (2)
  - ARTHRALGIA [None]
  - DRUG ERUPTION [None]
